FAERS Safety Report 11714989 (Version 1)
Quarter: 2015Q4

REPORT INFORMATION
  Report Type: Spontaneous
  Country: US (occurrence: US)
  Receive Date: 20151109
  Receipt Date: 20151109
  Transmission Date: 20160304
  Serious: No
  Sender: FDA-Public Use
  Company Number: US-BAYER-2015-464238

PATIENT
  Sex: Female

DRUGS (3)
  1. CLARITIN [Suspect]
     Active Substance: LORATADINE
     Indication: EYE PRURITUS
     Dosage: UNK
     Route: 048
  2. CLARITIN [Suspect]
     Active Substance: LORATADINE
     Indication: LACRIMATION INCREASED
  3. CLARITIN [Suspect]
     Active Substance: LORATADINE
     Indication: RHINORRHOEA

REACTIONS (1)
  - Drug ineffective [None]
